FAERS Safety Report 9928741 (Version 1)
Quarter: 2014Q1

REPORT INFORMATION
  Report Type: Spontaneous
  Country: US (occurrence: None)
  Receive Date: 20140225
  Receipt Date: 20140225
  Transmission Date: 20141002
  Serious: Yes (Hospitalization)
  Sender: FDA-Public Use
  Company Number: US-ALKEM-000497

PATIENT
  Age: 67 Year
  Sex: Female

DRUGS (6)
  1. METFORMIN [Suspect]
     Indication: TYPE 2 DIABETES MELLITUS
  2. LISINOPRIL (LISINOPRIL) [Concomitant]
  3. CLOPIDOGREL (CLOPIDOGREL) [Concomitant]
  4. ASPIRIN (ASPIRIN) [Concomitant]
  5. METOPROLOL (METOPROLOL) [Concomitant]
  6. ACETAMINOPHEN W/HYDROCODONE (ACETAMINOPHEN W/HYDROCODONE) [Concomitant]

REACTIONS (17)
  - Lactic acidosis [None]
  - Blindness transient [None]
  - Body temperature decreased [None]
  - Heart rate decreased [None]
  - Blood pressure diastolic increased [None]
  - Blood creatinine increased [None]
  - Blood creatine phosphokinase increased [None]
  - Aspartate aminotransferase increased [None]
  - Haemoglobin decreased [None]
  - Platelet count increased [None]
  - Hyperkalaemia [None]
  - Metabolic acidosis [None]
  - Haemodialysis [None]
  - Alanine aminotransferase increased [None]
  - Drug level increased [None]
  - Toxicity to various agents [None]
  - Hypothermia [None]
